FAERS Safety Report 8037610-9 (Version None)
Quarter: 2011Q4

REPORT INFORMATION
  Report Type: 
  Country: None (occurrence: None)
  Receive Date: 20111202
  Receipt Date: 20101021
  Transmission Date: 20120403
  Serious: Yes (Other)
  Sender: FDA-Public Use
  Company Number: WAES 1009USA03824

PATIENT
  Sex: Female

DRUGS (1)
  1. FOSAMAX [Suspect]
     Dosage: 70 MG/WKY/PO
     Route: 048

REACTIONS (3)
  - OESOPHAGEAL PAIN [None]
  - THROAT IRRITATION [None]
  - DYSPEPSIA [None]
